FAERS Safety Report 7896213-7 (Version None)
Quarter: 2011Q4

REPORT INFORMATION
  Report Type: 
  Country: None (occurrence: None)
  Receive Date: 20111028
  Receipt Date: 20110517
  Transmission Date: 20120403
  Serious: Yes (Hospitalization)
  Sender: FDA-Public Use
  Company Number: DSA_46801_2011

PATIENT
  Sex: Female

DRUGS (1)
  1. WELLBUTRIN XL [Suspect]
     Indication: PRODUCT USED FOR UNKNOWN INDICATION
     Dosage: (DF ORAL)
     Route: 048
     Dates: start: 20080901

REACTIONS (5)
  - PAIN [None]
  - CONVULSION [None]
  - EMOTIONAL DISTRESS [None]
  - ANXIETY [None]
  - SUICIDE ATTEMPT [None]
